FAERS Safety Report 9348302 (Version 3)
Quarter: 2017Q4

REPORT INFORMATION
  Report Type: Spontaneous
  Country: US (occurrence: US)
  Receive Date: 20130614
  Receipt Date: 20171218
  Transmission Date: 20180321
  Serious: Yes (Hospitalization, Other)
  Sender: FDA-Public Use
  Company Number: US-PFIZER INC-2013178853

PATIENT
  Age: 48 Year
  Sex: Female
  Weight: 58.97 kg

DRUGS (7)
  1. ZOLOFT [Suspect]
     Active Substance: SERTRALINE HYDROCHLORIDE
     Dosage: 50 MG, UNK
     Route: 048
  2. ZOLOFT [Suspect]
     Active Substance: SERTRALINE HYDROCHLORIDE
     Dosage: 250 MG, DAILY (PER DAY)
     Dates: start: 1992
  3. ZOLOFT [Suspect]
     Active Substance: SERTRALINE HYDROCHLORIDE
     Dosage: UNK
     Dates: start: 1991
  4. LITHIUM. [Concomitant]
     Active Substance: LITHIUM
     Indication: MANIA
     Dosage: 300 MG, 3X/DAY
     Route: 048
     Dates: start: 1992
  5. SERTRALINE HCL [Suspect]
     Active Substance: SERTRALINE HYDROCHLORIDE
     Indication: DEPRESSION
     Dosage: 200 MG, 1X/DAY
     Route: 048
  6. ZOLOFT [Suspect]
     Active Substance: SERTRALINE HYDROCHLORIDE
     Indication: BIPOLAR I DISORDER
     Dosage: UNK, 1X/DAY
     Route: 048
  7. ZOLOFT [Suspect]
     Active Substance: SERTRALINE HYDROCHLORIDE
     Indication: DEPRESSION
     Dosage: 200 MG, DAILY
     Route: 048

REACTIONS (17)
  - Cortisol increased [Unknown]
  - Agitation [Unknown]
  - Loss of personal independence in daily activities [Unknown]
  - Drug ineffective [Unknown]
  - Drug dependence [Unknown]
  - Malaise [Unknown]
  - Withdrawal syndrome [Unknown]
  - Drug intolerance [Unknown]
  - Condition aggravated [Unknown]
  - Feeling abnormal [Unknown]
  - Mania [Not Recovered/Not Resolved]
  - Depression [Unknown]
  - Personality change [Unknown]
  - Suicidal ideation [Unknown]
  - Suicidal behaviour [Unknown]
  - Product use in unapproved indication [Unknown]
  - Overdose [Unknown]
